FAERS Safety Report 25334949 (Version 4)
Quarter: 2025Q2

REPORT INFORMATION
  Report Type: Report from Study
  Country: FR (occurrence: FR)
  Receive Date: 20250520
  Receipt Date: 20250623
  Transmission Date: 20250716
  Serious: Yes (Congenital Anomaly)
  Sender: MERCK SHARP & DOHME LLC
  Company Number: None

PATIENT

DRUGS (4)
  1. ISENTRESS [Suspect]
     Active Substance: RALTEGRAVIR POTASSIUM
     Route: 064
     Dates: start: 20231001, end: 20231005
  2. NORVIR [Suspect]
     Active Substance: RITONAVIR
     Route: 064
     Dates: start: 20231001, end: 20231005
  3. TRUVADA [Suspect]
     Active Substance: EMTRICITABINE\TENOFOVIR DISOPROXIL FUMARATE
     Route: 064
     Dates: start: 20231001, end: 20231005
  4. BIKTARVY [Suspect]
     Active Substance: BICTEGRAVIR SODIUM\EMTRICITABINE\TENOFOVIR ALAFENAMIDE FUMARATE
     Route: 064
     Dates: start: 20230620, end: 20230930

REACTIONS (2)
  - Foetal malformation [Unknown]
  - Foetal exposure during pregnancy [Recovered/Resolved]

NARRATIVE: CASE EVENT DATE: 20230620
